FAERS Safety Report 18689538 (Version 2)
Quarter: 2021Q3

REPORT INFORMATION
  Report Type: Spontaneous
  Country: DE (occurrence: DE)
  Receive Date: 20201231
  Receipt Date: 20210818
  Transmission Date: 20211014
  Serious: Yes (Hospitalization)
  Sender: FDA-Public Use
  Company Number: DE-TEVA-2020-DE-1863634

PATIENT
  Age: 98 Year
  Sex: Female
  Weight: 64 kg

DRUGS (6)
  1. CANDESARTAN/HYDROCHLOROTHIAZID [Concomitant]
     Active Substance: CANDESARTAN CILEXETIL\HYDROCHLOROTHIAZIDE
     Dosage: 1 DOSAGE FORMS DAILY; 16|12.5 MG, 1?0?0?0
     Route: 048
  2. ASS 100 [Suspect]
     Active Substance: ASPIRIN
     Dosage: 100 MILLIGRAM DAILY; 1?0?0?0
     Route: 048
  3. TROSPIUM ARISTO 30MG [Concomitant]
     Dosage: 60 MILLIGRAM DAILY; 1?0?1?0
     Route: 048
  4. SIMVASTATIN. [Concomitant]
     Active Substance: SIMVASTATIN
     Dosage: .5 DOSAGE FORMS DAILY; 20 MG, 0?0?0.5?0
     Route: 048
  5. TAVU 50MIKROGRAMM LATANOPROST + 5MG TIMOLOL PRO 1ML [Concomitant]
     Dosage: 1 GTT DAILY; 1?0?0?0, DROPS
     Route: 047
  6. LACTULOSE. [Suspect]
     Active Substance: LACTULOSE
     Dosage: JUICE
     Route: 065

REACTIONS (2)
  - Diarrhoea [Recovering/Resolving]
  - Haematochezia [Recovering/Resolving]
